FAERS Safety Report 8361068-3 (Version None)
Quarter: 2012Q2

REPORT INFORMATION
  Report Type: 
  Country: None (occurrence: None)
  Receive Date: 20120515
  Receipt Date: 20120507
  Transmission Date: 20120825
  Serious: Yes (Death, Other)
  Sender: FDA-Public Use
  Company Number: US-ROCHE-1056460

PATIENT
  Sex: Female
  Weight: 73.094 kg

DRUGS (1)
  1. XELODA [Suspect]
     Indication: COLON CANCER
     Dosage: MORN: 1500 MG, EVENING: 1000 MG
     Route: 048
     Dates: start: 20120319, end: 20120325

REACTIONS (3)
  - DEATH [None]
  - MYOCARDIAL INFARCTION [None]
  - HYPERTENSION [None]
